FAERS Safety Report 21286450 (Version 1)
Quarter: 2022Q3

REPORT INFORMATION
  Report Type: Spontaneous
  Country: CN (occurrence: CN)
  Receive Date: 20220902
  Receipt Date: 20220902
  Transmission Date: 20221027
  Serious: Yes (Death, Hospitalization, Other)
  Sender: FDA-Public Use
  Company Number: CN-009507513-2208CHN010313

PATIENT
  Age: 69 Year
  Sex: Female

DRUGS (4)
  1. PEMBROLIZUMAB [Suspect]
     Active Substance: PEMBROLIZUMAB
     Indication: Malignant mediastinal neoplasm
     Dosage: 200 MILLIGRAM, CYCLICAL, D1
     Route: 041
     Dates: start: 20181121
  2. PEMBROLIZUMAB [Suspect]
     Active Substance: PEMBROLIZUMAB
     Dosage: 200 MILLIGRAM, CYCLICAL, D1
     Route: 041
     Dates: start: 20181217
  3. CISPLATIN [Concomitant]
     Active Substance: CISPLATIN
     Indication: Malignant mediastinal neoplasm
     Dosage: 100 MILLIGRAM, CYCLICAL, D1
     Route: 041
     Dates: start: 20181121
  4. CISPLATIN [Concomitant]
     Active Substance: CISPLATIN
     Dosage: 100 MILLIGRAM, CYCLICAL, D1
     Route: 041
     Dates: start: 20181217

REACTIONS (2)
  - Immune-mediated myocarditis [Fatal]
  - Product use in unapproved indication [Unknown]

NARRATIVE: CASE EVENT DATE: 20181121
